FAERS Safety Report 4501496-7 (Version None)
Quarter: 2004Q4

REPORT INFORMATION
  Report Type: 
  Country: None (occurrence: None)
  Receive Date: 20041109
  Receipt Date: 20041027
  Transmission Date: 20050328
  Serious: Yes (Hospitalization)
  Sender: FDA-Public Use
  Company Number: 2003156725JP

PATIENT
  Age: 26 Year
  Sex: Male
  Weight: 49.4 kg

DRUGS (1)
  1. SULFASALAZINE [Suspect]
     Indication: COLITIS ULCERATIVE
     Dosage: 1500 MG, TID, ORAL
     Route: 048
     Dates: start: 20040301

REACTIONS (7)
  - C-REACTIVE PROTEIN INCREASED [None]
  - DRUG HYPERSENSITIVITY [None]
  - INFECTIOUS MONONUCLEOSIS [None]
  - LIVER DISORDER [None]
  - LYMPHOCYTE MORPHOLOGY ABNORMAL [None]
  - LYMPHOPENIA [None]
  - SERUM SICKNESS [None]
